FAERS Safety Report 23585163 (Version 2)
Quarter: 2024Q1

REPORT INFORMATION
  Report Type: Report from Study
  Country: US (occurrence: US)
  Receive Date: 20240301
  Receipt Date: 20240328
  Transmission Date: 20240409
  Serious: Yes (Other)
  Sender: FDA-Public Use
  Company Number: US-ABBVIE-5658864

PATIENT
  Sex: Female

DRUGS (1)
  1. RINVOQ [Suspect]
     Active Substance: UPADACITINIB
     Indication: Dermatitis atopic
     Route: 048

REACTIONS (7)
  - Breast cancer recurrent [Unknown]
  - Vitreous detachment [Unknown]
  - Breast mass [Not Recovered/Not Resolved]
  - Intramammary lymph node [Not Recovered/Not Resolved]
  - Facial pain [Not Recovered/Not Resolved]
  - Bone pain [Recovered/Resolved]
  - Paraesthesia [Not Recovered/Not Resolved]

NARRATIVE: CASE EVENT DATE: 20200101
